FAERS Safety Report 18800071 (Version 1)
Quarter: 2021Q1

REPORT INFORMATION
  Report Type: Spontaneous
  Country: US (occurrence: US)
  Receive Date: 20210128
  Receipt Date: 20210128
  Transmission Date: 20210419
  Serious: Yes (Other)
  Sender: FDA-Public Use
  Company Number: US-PFIZER INC-2021049971

PATIENT
  Age: 71 Year
  Sex: Female

DRUGS (62)
  1. PREDNISONE. [Suspect]
     Active Substance: PREDNISONE
     Dosage: 40MG QD
     Dates: start: 2016, end: 2018
  2. FLUTICASONE + SALMETEROL [Suspect]
     Active Substance: FLUTICASONE FUROATE\SALMETEROL XINAFOATE
     Indication: ARTHRALGIA
     Dosage: 230/21 2 PUFFS BID
     Dates: start: 2011, end: 2015
  3. FORMOTEROL/MOMETASONE [Suspect]
     Active Substance: FORMOTEROL\MOMETASONE
     Indication: ARTHRALGIA
  4. PANTOPRAZOLE [Concomitant]
     Active Substance: PANTOPRAZOLE
     Indication: VOCAL CORD DISORDER
     Dosage: 40 MG, 2X/DAY
     Dates: start: 2009, end: 2018
  5. METHYLPREDNISOLONE. [Suspect]
     Active Substance: METHYLPREDNISOLONE
     Indication: ASTHMA
     Dosage: 60 MG
     Dates: start: 2006, end: 2010
  6. METHYLPREDNISOLONE. [Suspect]
     Active Substance: METHYLPREDNISOLONE
     Indication: SINUSITIS
     Dosage: 40MG
     Dates: start: 2006, end: 2010
  7. METHYLPREDNISOLONE. [Suspect]
     Active Substance: METHYLPREDNISOLONE
     Dosage: 20 MG
     Dates: start: 2011, end: 2015
  8. HYDROCORTISONE. [Suspect]
     Active Substance: HYDROCORTISONE
     Dosage: 15 MG, DAILY AM
  9. HYDROCORTISONE. [Suspect]
     Active Substance: HYDROCORTISONE
     Dosage: 5MG PM
  10. PREDNISONE. [Suspect]
     Active Substance: PREDNISONE
     Dosage: 20 MG QD 7 D
     Dates: start: 2011, end: 2015
  11. PREDNISONE. [Suspect]
     Active Substance: PREDNISONE
     Dosage: AND 20 MG 5 D
     Dates: start: 2011, end: 2015
  12. PREDNISONE. [Suspect]
     Active Substance: PREDNISONE
     Dosage: 40MG 5D
     Dates: start: 2011, end: 2015
  13. PREDNISONE. [Suspect]
     Active Substance: PREDNISONE
     Dosage: 20 MG 5D
     Dates: start: 2011, end: 2015
  14. TRIAMCINOLONE [Suspect]
     Active Substance: TRIAMCINOLONE
     Indication: SINUSITIS
     Dosage: 55 MCG/ACTUATION 1?2 SPRAYS EACH NOSTRIL QD
     Dates: start: 2001, end: 2005
  15. BUSPIRONE [Concomitant]
     Active Substance: BUSPIRONE HYDROCHLORIDE
     Indication: DEPRESSION
     Dosage: UNK
  16. CICLOPIROX. [Concomitant]
     Active Substance: CICLOPIROX
     Indication: ONYCHOMYCOSIS
     Dosage: UNK
  17. HYDROCORTISONE. [Suspect]
     Active Substance: HYDROCORTISONE
     Dosage: UNK EAR DROPS
     Dates: start: 2001, end: 2005
  18. HYDROCORTISONE. [Suspect]
     Active Substance: HYDROCORTISONE
     Dosage: 5MG PM
  19. PREDNISONE. [Suspect]
     Active Substance: PREDNISONE
     Indication: ARTHRALGIA
     Dosage: PREDNISONE 50 MG QD
     Dates: start: 2006, end: 2010
  20. PREDNISONE. [Suspect]
     Active Substance: PREDNISONE
     Dosage: 20 MG BID 5 D
     Dates: start: 2011, end: 2015
  21. METHYLPREDNISOLONE. [Suspect]
     Active Substance: METHYLPREDNISOLONE
     Indication: ARTHRALGIA
     Dosage: 40 MG
     Dates: start: 2001, end: 2005
  22. HYDROCORTISONE. [Suspect]
     Active Substance: HYDROCORTISONE
     Dosage: 10MG AM
  23. PREDNISONE. [Suspect]
     Active Substance: PREDNISONE
     Dosage: 40 MG QD 6 D
     Dates: start: 2006, end: 2010
  24. PREDNISONE. [Suspect]
     Active Substance: PREDNISONE
     Dosage: 3 COURSES IN A YEAR UPTO 80MG DAILY MAX DOSE, TAPER DOWN
     Dates: start: 2016, end: 2018
  25. FLUTICASONE + SALMETEROL [Suspect]
     Active Substance: FLUTICASONE FUROATE\SALMETEROL XINAFOATE
     Dosage: 500/50 1 PUFF BID
     Dates: start: 2011, end: 2015
  26. GABAPENTIN. [Concomitant]
     Active Substance: GABAPENTIN
     Indication: DEPRESSION
     Dosage: UNK
  27. TERBINAFINE. [Concomitant]
     Active Substance: TERBINAFINE
     Indication: ONYCHOMYCOSIS
     Dosage: UNK
  28. PREDNISONE. [Suspect]
     Active Substance: PREDNISONE
     Dosage: 20 MG BID 3 D
     Dates: start: 2006, end: 2010
  29. PREDNISONE. [Suspect]
     Active Substance: PREDNISONE
     Dosage: 20 MG QD 6 D
     Dates: start: 2006, end: 2010
  30. PREDNISONE. [Suspect]
     Active Substance: PREDNISONE
     Dosage: 1 TAB BID 3?5 D
     Dates: start: 2011, end: 2015
  31. TRIAMCINOLONE [Suspect]
     Active Substance: TRIAMCINOLONE
     Indication: ARTHRALGIA
     Dosage: 0.1% BID EAR DROP PRN
     Dates: start: 2011, end: 2015
  32. BUDESONIDE/FORMOTEROL [Suspect]
     Active Substance: BUDESONIDE\FORMOTEROL
     Dosage: 2 PUFFS BID
     Dates: start: 2011, end: 2015
  33. FLUTICASONE. [Suspect]
     Active Substance: FLUTICASONE
     Indication: ASTHMA
     Dosage: 220 MCG 1?2 PUFFS BID
     Dates: start: 2016, end: 2018
  34. FLUTICASONE. [Suspect]
     Active Substance: FLUTICASONE
     Indication: ARTHRALGIA
     Dosage: 50 MCG 2SPRAYS EACH NOSTRIL BID
     Dates: start: 2016, end: 2018
  35. LUBIPROSTONE [Concomitant]
     Active Substance: LUBIPROSTONE
     Indication: CONSTIPATION
     Dosage: UNK
  36. METHYLPREDNISOLONE. [Suspect]
     Active Substance: METHYLPREDNISOLONE
     Dosage: 100 MG
     Dates: start: 2011, end: 2015
  37. HYDROCORTISONE. [Suspect]
     Active Substance: HYDROCORTISONE
     Dosage: UNK EAR DROPS.ONE COURSE
     Dates: start: 2011, end: 2015
  38. PREDNISONE. [Suspect]
     Active Substance: PREDNISONE
     Dosage: 60 MG QD,3 D
     Dates: start: 2011, end: 2015
  39. PREDNISONE. [Suspect]
     Active Substance: PREDNISONE
     Dosage: 40 MG 5 D
     Dates: start: 2011, end: 2015
  40. FLUTICASONE + SALMETEROL [Suspect]
     Active Substance: FLUTICASONE FUROATE\SALMETEROL XINAFOATE
     Indication: SINUSITIS
     Dosage: 250/50 1 PUFF BID
     Dates: start: 2011, end: 2015
  41. TRIAMCINOLONE [Suspect]
     Active Substance: TRIAMCINOLONE
     Indication: ASTHMA
     Dosage: 75 MCG 3 PUFFS QD
     Dates: start: 2001, end: 2005
  42. VENLAFAXINE [Concomitant]
     Active Substance: VENLAFAXINE HYDROCHLORIDE
     Indication: DEPRESSION
     Dosage: 75 MG, DAILY
  43. PREDNISONE. [Suspect]
     Active Substance: PREDNISONE
     Dosage: 40 MG X 2 DAY
     Dates: start: 2011, end: 2015
  44. PREDNISONE. [Suspect]
     Active Substance: PREDNISONE
     Dosage: 60 MG 3D
     Dates: start: 2011, end: 2015
  45. FLUTICASONE + SALMETEROL [Suspect]
     Active Substance: FLUTICASONE FUROATE\SALMETEROL XINAFOATE
     Indication: ASTHMA
     Dosage: 250/50 1 PUFF BID
     Dates: start: 2006, end: 2010
  46. FORMOTEROL/MOMETASONE [Suspect]
     Active Substance: FORMOTEROL\MOMETASONE
     Indication: SINUSITIS
     Dosage: 200/5 2 PUFFS BID
     Dates: start: 2016, end: 2018
  47. BUDESONIDE/FORMOTEROL [Suspect]
     Active Substance: BUDESONIDE\FORMOTEROL
     Dosage: 2 PUFFS BID
     Dates: start: 2006, end: 2010
  48. CLOTRIMAZOLE AND BETAMETHASONE [Suspect]
     Active Substance: BETAMETHASONE\CLOTRIMAZOLE
     Dosage: 1?0.05% BID
     Dates: start: 2016, end: 2018
  49. AMLODIPINE [Concomitant]
     Active Substance: AMLODIPINE BESYLATE
     Indication: HYPERTENSION
     Dosage: UNK
  50. LEVOTHYROXINE. [Concomitant]
     Active Substance: LEVOTHYROXINE
     Indication: HYPOTHYROIDISM
     Dosage: 25 UG, DAILY
  51. POLYETHYLENE GLYCOL COMPOUND [Concomitant]
     Indication: CONSTIPATION
     Dosage: UNK
  52. METHYLPREDNISOLONE. [Suspect]
     Active Substance: METHYLPREDNISOLONE
     Dosage: 160 MG (40MGX4)
     Dates: start: 2011, end: 2015
  53. PREDNISONE. [Suspect]
     Active Substance: PREDNISONE
     Indication: SINUSITIS
     Dosage: 15 MG
     Dates: start: 2006, end: 2010
  54. PREDNISONE. [Suspect]
     Active Substance: PREDNISONE
     Dosage: 10 MG QD 3D
     Dates: start: 2006, end: 2010
  55. FORMOTEROL/MOMETASONE [Suspect]
     Active Substance: FORMOTEROL\MOMETASONE
     Indication: ASTHMA
     Dosage: 200 MCG /5 MCG 2 PUFFS BID
     Dates: start: 2011, end: 2015
  56. FLUTICASONE. [Suspect]
     Active Substance: FLUTICASONE
     Indication: SINUSITIS
     Dosage: 220 MCG 1?2 PUFFS BID PRN
     Dates: start: 2016, end: 2018
  57. FELODIPINE. [Concomitant]
     Active Substance: FELODIPINE
     Indication: HYPERTENSION
     Dosage: UNK
  58. ESCITALOPRAM [Concomitant]
     Active Substance: ESCITALOPRAM OXALATE
     Indication: DEPRESSION
     Dosage: 15 MG, DAILY
  59. BUPROPION. [Concomitant]
     Active Substance: BUPROPION
     Indication: DEPRESSION
     Dosage: UNK
  60. KETOCONAZOLE. [Concomitant]
     Active Substance: KETOCONAZOLE
     Indication: ONYCHOMYCOSIS
     Dosage: UNK
  61. PREDNISONE. [Suspect]
     Active Substance: PREDNISONE
     Indication: ASTHMA
     Dosage: 20 MG TID FOR 4 DAYS
     Dates: start: 2001, end: 2005
  62. PREDNISONE. [Suspect]
     Active Substance: PREDNISONE
     Dosage: UNK
     Dates: start: 2011, end: 2015

REACTIONS (1)
  - Adrenal insufficiency [Unknown]
